FAERS Safety Report 8486222-1 (Version None)
Quarter: 2012Q3

REPORT INFORMATION
  Report Type: 
  Country: None (occurrence: None)
  Receive Date: 20120703
  Receipt Date: 20120626
  Transmission Date: 20120928
  Serious: Yes (Other)
  Sender: FDA-Public Use
  Company Number: US-ELI_LILLY_AND_COMPANY-US201207000677

PATIENT

DRUGS (2)
  1. THERAPEUTIC RADIOPHARMACEUTICALS [Concomitant]
  2. GEMCITABINE HYDROCHLORIDE [Suspect]
     Indication: ADENOCARCINOMA PANCREAS
     Dosage: UNK UNK, WEEKLY (1/W)

REACTIONS (1)
  - GASTROINTESTINAL TOXICITY [None]
